FAERS Safety Report 13384682 (Version 1)
Quarter: 2017Q1

REPORT INFORMATION
  Report Type: Spontaneous
  Country: US (occurrence: US)
  Receive Date: 20170329
  Receipt Date: 20170329
  Transmission Date: 20170429
  Serious: Yes (Death)
  Sender: FDA-Public Use
  Company Number: None

PATIENT
  Age: 89 Year
  Sex: Female

DRUGS (11)
  1. LETAIRIS [Suspect]
     Active Substance: AMBRISENTAN
     Indication: SCLERODERMA
     Route: 048
     Dates: start: 20120228, end: 20170223
  2. LORAZEPAM. [Concomitant]
     Active Substance: LORAZEPAM
  3. LETAIRIS [Suspect]
     Active Substance: AMBRISENTAN
     Indication: SCLERODERMA
     Route: 048
     Dates: start: 20120228, end: 20170223
  4. AMBRISENTAN [Concomitant]
     Active Substance: AMBRISENTAN
  5. PREDNISONE. [Concomitant]
     Active Substance: PREDNISONE
  6. ALBUTEROL. [Concomitant]
     Active Substance: ALBUTEROL
  7. SALMETOROL [Concomitant]
  8. MORPHINE [Concomitant]
     Active Substance: MORPHINE
  9. OMEPRAZOLE. [Concomitant]
     Active Substance: OMEPRAZOLE
  10. LOSARTAN. [Concomitant]
     Active Substance: LOSARTAN
  11. QVAR [Concomitant]
     Active Substance: BECLOMETHASONE DIPROPIONATE

REACTIONS (1)
  - Fall [None]

NARRATIVE: CASE EVENT DATE: 20170223
